FAERS Safety Report 20746182 (Version 2)
Quarter: 2022Q3

REPORT INFORMATION
  Report Type: Report from Study
  Country: US (occurrence: US)
  Receive Date: 20220425
  Receipt Date: 20220722
  Transmission Date: 20221027
  Serious: No
  Sender: FDA-Public Use
  Company Number: US-MIRM-000347

PATIENT
  Sex: Female

DRUGS (1)
  1. LIVMARLI [Suspect]
     Active Substance: MARALIXIBAT CHLORIDE
     Dosage: BATCH NUMBER: UNKNOWN WITH EXPIRATION DATE OF 01APR2022
     Dates: start: 20220218

REACTIONS (3)
  - Blood bilirubin increased [Recovering/Resolving]
  - Influenza [Recovered/Resolved]
  - Pruritus [Not Recovered/Not Resolved]

NARRATIVE: CASE EVENT DATE: 20220101
